FAERS Safety Report 14643930 (Version 2)
Quarter: 2018Q1

REPORT INFORMATION
  Report Type: Report from Study
  Country: AU (occurrence: AU)
  Receive Date: 20180315
  Receipt Date: 20180322
  Transmission Date: 20180509
  Serious: Yes (Hospitalization)
  Sender: FDA-Public Use
  Company Number: AU-PFIZER INC-2018059758

PATIENT
  Age: 52 Year
  Sex: Male
  Weight: 125 kg

DRUGS (11)
  1. AVELUMAB [Suspect]
     Active Substance: AVELUMAB
     Indication: RENAL CELL CARCINOMA
     Dosage: 1190 MG, EVERY 2 WEEKS
     Route: 042
     Dates: start: 20161208, end: 20180202
  2. LOPERAMIDE [Concomitant]
     Active Substance: LOPERAMIDE
     Dosage: 2 MG, 1 X DAY OR TWICE A DAY
     Route: 048
     Dates: start: 20170818
  3. HYDROCORTISONE. [Concomitant]
     Active Substance: HYDROCORTISONE
     Dosage: UNK
     Dates: start: 20170629
  4. MAXOLON [Concomitant]
     Active Substance: METOCLOPRAMIDE HYDROCHLORIDE
     Dosage: 10 MG, AS NEEDED
     Route: 048
     Dates: start: 20171027
  5. ATORVASTATIN [Concomitant]
     Active Substance: ATORVASTATIN
     Dosage: UNK
     Dates: start: 20170928, end: 20171103
  6. RAMIPRIL. [Concomitant]
     Active Substance: RAMIPRIL
     Indication: HYPERTENSION
     Dosage: 2.5 MG, UNK
     Dates: start: 20170721, end: 20171221
  7. RANITIDINE. [Concomitant]
     Active Substance: RANITIDINE
     Indication: PRURITUS
     Dosage: 150 MG, 1X/DAY
     Route: 048
     Dates: start: 20170928
  8. AMLODIPINE [Concomitant]
     Active Substance: AMLODIPINE BESYLATE
     Dosage: 10 MG, UNK
     Route: 048
     Dates: start: 20170623
  9. LIPIDIL [Concomitant]
     Active Substance: FENOFIBRATE
     Dosage: UNK
     Dates: start: 20171103
  10. LORATADINE. [Concomitant]
     Active Substance: LORATADINE
     Dosage: 10 MG, 1 X DAY PRN
     Route: 048
     Dates: start: 20170629
  11. AXITINIB [Suspect]
     Active Substance: AXITINIB
     Indication: RENAL CELL CARCINOMA
     Dosage: 5 MG, 2X/DAY CONTINUOUS
     Route: 048
     Dates: start: 20161208, end: 20180206

REACTIONS (1)
  - Colitis [Recovered/Resolved]

NARRATIVE: CASE EVENT DATE: 20180207
